FAERS Safety Report 5809839-9 (Version None)
Quarter: 2008Q3

REPORT INFORMATION
  Report Type: 
  Country: None (occurrence: None)
  Receive Date: 20080715
  Receipt Date: 20080704
  Transmission Date: 20090109
  Serious: Yes (Other)
  Sender: FDA-Public Use
  Company Number: KR-JNJFOC-20080700955

PATIENT
  Age: 5 Decade
  Sex: Female

DRUGS (2)
  1. SPORANOX [Suspect]
     Indication: ONYCHOMYCOSIS
     Route: 048
  2. DIGESTIVE [Concomitant]

REACTIONS (3)
  - EAR DISCOMFORT [None]
  - MENIERE'S DISEASE [None]
  - TINNITUS [None]
